FAERS Safety Report 4428041-9 (Version None)
Quarter: 2004Q3

REPORT INFORMATION
  Report Type: 
  Country: None (occurrence: None)
  Receive Date: 20040817
  Receipt Date: 20040809
  Transmission Date: 20050211
  Serious: Yes (Hospitalization)
  Sender: FDA-Public Use
  Company Number: US-MERCK-0408USA00873

PATIENT
  Age: 62 Year
  Sex: Male

DRUGS (2)
  1. VIOXX [Suspect]
     Indication: OSTEOARTHRITIS
     Route: 048
     Dates: start: 20010901, end: 20040812
  2. VIOXX [Suspect]
     Indication: PAIN
     Route: 048
     Dates: start: 20010901, end: 20040812

REACTIONS (1)
  - MYOCARDIAL INFARCTION [None]
